FAERS Safety Report 11666609 (Version 2)
Quarter: 2015Q4

REPORT INFORMATION
  Report Type: Report from Study
  Country: US (occurrence: US)
  Receive Date: 20151027
  Receipt Date: 20151029
  Transmission Date: 20160304
  Serious: No
  Sender: FDA-Public Use
  Company Number: PHEH2015US002449

PATIENT
  Sex: Female

DRUGS (1)
  1. EXJADE [Suspect]
     Active Substance: DEFERASIROX
     Indication: IRON OVERLOAD
     Dosage: 3 DF, QD (MIX AND DRINK 3 TABLET (TOTAL DOSE OF 375 MG) IN 3.5 OUNCE WATER, ORANGE OR APPLE JUICE)
     Route: 048
     Dates: start: 201410

REACTIONS (1)
  - No adverse event [Unknown]
